FAERS Safety Report 19276669 (Version 1)
Quarter: 2021Q2

REPORT INFORMATION
  Report Type: Report from Study
  Country: None (occurrence: US)
  Receive Date: 20210520
  Receipt Date: 20210520
  Transmission Date: 20210717
  Serious: Yes (Other)
  Sender: FDA-Public Use
  Company Number: US-ABBVIE-21K-163-3747657-00

PATIENT
  Sex: Female

DRUGS (3)
  1. HUMIRA [Suspect]
     Active Substance: ADALIMUMAB
     Indication: PSORIATIC ARTHROPATHY
     Dosage: CITRATE FREE
     Route: 058
  2. HUMIRA [Suspect]
     Active Substance: ADALIMUMAB
     Indication: RHEUMATOID ARTHRITIS
  3. COVID?19 VACCINE NOS. [Concomitant]
     Active Substance: COVID-19 VACCINE NOS
     Indication: COVID-19 IMMUNISATION
     Route: 030

REACTIONS (11)
  - Oral herpes [Recovering/Resolving]
  - Ankylosing spondylitis [Not Recovered/Not Resolved]
  - Osteoarthritis [Not Recovered/Not Resolved]
  - Hepatic enzyme increased [Unknown]
  - Hepato-lenticular degeneration [Recovering/Resolving]
  - Nerve block [Unknown]
  - Nerve block [Recovered/Resolved]
  - Sinus disorder [Recovered/Resolved]
  - Pain [Recovering/Resolving]
  - Condition aggravated [Recovered/Resolved]
  - Therapeutic product effect incomplete [Recovering/Resolving]
